FAERS Safety Report 5327473-4 (Version None)
Quarter: 2007Q2

REPORT INFORMATION
  Report Type: 
  Country: None (occurrence: None)
  Receive Date: 20070517
  Receipt Date: 20070131
  Transmission Date: 20071010
  Serious: Yes (Hospitalization)
  Sender: FDA-Public Use
  Company Number: US-JNJFOC-20070103486

PATIENT
  Age: 55 Year
  Sex: Male

DRUGS (9)
  1. TRAMADOL HCL [Suspect]
     Indication: INTENTIONAL DRUG MISUSE
     Route: 048
  2. OTHER ANTICONVULSANT [Suspect]
     Indication: DRUG USE FOR UNKNOWN INDICATION
     Route: 065
  3. ETHANOL [Concomitant]
     Route: 048
  4. SULFONYLUREA [Concomitant]
     Indication: HYPOGLYCAEMIA
     Route: 048
  5. OTHER ANTIDEPRESSANT [Concomitant]
     Route: 048
  6. OTHER MISCELLANEOUS PRESCRIPTION [Concomitant]
     Route: 065
  7. BIGUANIDE [Concomitant]
     Route: 048
  8. VASODILATOR [Concomitant]
     Route: 065
  9. NSAIDS [Concomitant]
     Route: 065

REACTIONS (5)
  - AGITATION [None]
  - FALL [None]
  - HEAD INJURY [None]
  - HYPERGLYCAEMIA [None]
  - OVERDOSE [None]
